FAERS Safety Report 20505443 (Version 1)
Quarter: 2022Q1

REPORT INFORMATION
  Report Type: Spontaneous
  Country: IR (occurrence: IR)
  Receive Date: 20220223
  Receipt Date: 20220223
  Transmission Date: 20220423
  Serious: Yes (Death, Hospitalization, Other)
  Sender: FDA-Public Use
  Company Number: IR-IPCA LABORATORIES LIMITED-IPC-2022-IR-000242

PATIENT

DRUGS (1)
  1. METFORMIN [Suspect]
     Active Substance: METFORMIN HYDROCHLORIDE
     Indication: Product used for unknown indication
     Dosage: 100 GRAM
     Route: 048

REACTIONS (10)
  - Hypotension [Fatal]
  - Depressed level of consciousness [Fatal]
  - Metabolic acidosis [Fatal]
  - Lethargy [Fatal]
  - Confusional state [Fatal]
  - Cyanosis [Fatal]
  - Cardiac arrest [Fatal]
  - Condition aggravated [Fatal]
  - Completed suicide [Fatal]
  - Intentional overdose [Fatal]
